FAERS Safety Report 5863993-1 (Version None)
Quarter: 2008Q3

REPORT INFORMATION
  Report Type: 
  Country: None (occurrence: None)
  Receive Date: 20080829
  Receipt Date: 20080820
  Transmission Date: 20090109
  Serious: Yes (Hospitalization)
  Sender: FDA-Public Use
  Company Number: PHHO2000CA02356

PATIENT
  Sex: Female

DRUGS (8)
  1. ERL 080A ERL+TAB [Suspect]
     Indication: RENAL TRANSPLANT
     Dosage: 720 MG, BID
     Route: 048
     Dates: start: 20000210
  2. NEORAL [Concomitant]
  3. PREDNISONE TAB [Concomitant]
  4. SOTALOL HCL [Concomitant]
  5. ALLOPURINOL [Concomitant]
  6. FUROSEMIDE [Concomitant]
  7. ALPROE [Concomitant]
  8. WARFARIN SODIUM [Concomitant]

REACTIONS (3)
  - DIARRHOEA [None]
  - RESPIRATORY TRACT INFECTION [None]
  - URINARY TRACT INFECTION [None]
